FAERS Safety Report 22109369 (Version 3)
Quarter: 2023Q2

REPORT INFORMATION
  Report Type: Report from Study
  Country: US (occurrence: US)
  Receive Date: 20230317
  Receipt Date: 20230405
  Transmission Date: 20230721
  Serious: No
  Sender: FDA-Public Use
  Company Number: US-BRISTOL-MYERS SQUIBB COMPANY-2023-039173

PATIENT
  Age: 44 Year
  Sex: Male
  Weight: 504 kg

DRUGS (2)
  1. REVLIMID [Suspect]
     Active Substance: LENALIDOMIDE
     Indication: Lymphoproliferative disorder
     Dosage: ONCE DAILY 14 OF 21 DAYS
     Route: 048
     Dates: start: 20230215
  2. THALOMID [Concomitant]
     Active Substance: THALIDOMIDE
     Indication: Product used for unknown indication

REACTIONS (20)
  - Arthralgia [Unknown]
  - Ageusia [Unknown]
  - Insomnia [Unknown]
  - Fatigue [Unknown]
  - Diarrhoea [Unknown]
  - Constipation [Unknown]
  - Vomiting [Unknown]
  - Rash [Unknown]
  - Skin exfoliation [Unknown]
  - Muscle spasms [Unknown]
  - Epistaxis [Unknown]
  - Sleep disorder [Unknown]
  - Nasopharyngitis [Unknown]
  - Myalgia [Unknown]
  - Hyperhidrosis [Unknown]
  - Peripheral swelling [Unknown]
  - Off label use [Unknown]
  - Pain in extremity [Unknown]
  - Abdominal discomfort [Unknown]
  - Decreased appetite [Unknown]

NARRATIVE: CASE EVENT DATE: 20230201
